FAERS Safety Report 6271581-0 (Version None)
Quarter: 2009Q3

REPORT INFORMATION
  Report Type: 
  Country: None (occurrence: None)
  Receive Date: 20090716
  Receipt Date: 20090716
  Transmission Date: 20100115
  Serious: Yes (Life-Threatening, Hospitalization, Disabling, Other)
  Sender: FDA-Public Use
  Company Number: None

PATIENT
  Sex: Female
  Weight: 61.6892 kg

DRUGS (1)
  1. NULYTELY [Suspect]
     Indication: TRANSIENT ISCHAEMIC ATTACK
     Dosage: 80 MG EVERY 10 MINS ORAL
     Route: 048
     Dates: start: 20090531

REACTIONS (4)
  - DISORIENTATION [None]
  - DYSPNOEA [None]
  - GAIT DISTURBANCE [None]
  - HYPOAESTHESIA [None]
